FAERS Safety Report 8064984-5 (Version None)
Quarter: 2012Q1

REPORT INFORMATION
  Report Type: 
  Country: None (occurrence: None)
  Receive Date: 20120124
  Receipt Date: 20120118
  Transmission Date: 20120608
  Serious: No
  Sender: FDA-Public Use
  Company Number: US-BIOGENIDEC-2012BI002242

PATIENT
  Sex: Female

DRUGS (3)
  1. TYSABRI [Suspect]
     Indication: MULTIPLE SCLEROSIS
     Route: 042
     Dates: start: 20020401
  2. TYSABRI [Suspect]
     Route: 042
     Dates: start: 20110809
  3. TYSABRI [Suspect]
     Route: 042
     Dates: start: 20080731, end: 20100713

REACTIONS (2)
  - HYPERSOMNIA [None]
  - CENTRAL NERVOUS SYSTEM LESION [None]
